FAERS Safety Report 7014875-3 (Version None)
Quarter: 2010Q3

REPORT INFORMATION
  Report Type: 
  Country: None (occurrence: None)
  Receive Date: 20100927
  Receipt Date: 20100309
  Transmission Date: 20110219
  Serious: No
  Sender: FDA-Public Use
  Company Number: US-ASTRAZENECA-2010SE10238

PATIENT
  Sex: Female
  Weight: 52.2 kg

DRUGS (3)
  1. ARIMIDEX [Suspect]
     Indication: BREAST CANCER
     Route: 048
  2. METFORMIN [Concomitant]
  3. VITAMINS [Concomitant]

REACTIONS (6)
  - BODY HEIGHT DECREASED [None]
  - FACE INJURY [None]
  - FACIAL PAIN [None]
  - FALL [None]
  - LIMB CRUSHING INJURY [None]
  - SWELLING FACE [None]
